FAERS Safety Report 4767759-5 (Version None)
Quarter: 2005Q3

REPORT INFORMATION
  Report Type: 
  Country: None (occurrence: None)
  Receive Date: 20050912
  Receipt Date: 20050829
  Transmission Date: 20060218
  Serious: Yes (Death, Hospitalization)
  Sender: FDA-Public Use
  Company Number: 2005120679

PATIENT
  Age: 71 Year
  Sex: Male

DRUGS (7)
  1. LIPITOR [Suspect]
     Indication: HYPERCHOLESTEROLAEMIA
     Dosage: 10 MG, ORAL
     Route: 048
     Dates: start: 20040225, end: 20050412
  2. PROSCAR [Suspect]
     Indication: ILL-DEFINED DISORDER
     Dosage: 5 MG, ORAL
     Route: 048
     Dates: start: 19960101
  3. METOPROLOL SUCCINATE [Suspect]
     Indication: TACHYCARDIA
     Dosage: 25 MG, ORAL
     Route: 048
     Dates: start: 20050412, end: 20050513
  4. ISOPTIN [Suspect]
     Indication: TACHYCARDIA
     Dosage: 40 MG, ORAL
     Route: 048
     Dates: start: 20050113, end: 20050406
  5. GLUCOPHAGE [Suspect]
     Indication: DIABETES MELLITUS
     Dosage: 1000 MG (500 MG, 2 IN 1 D), ORAL
     Route: 048
     Dates: start: 20030310
  6. VIVAL (DIAZEPAM) [Concomitant]
  7. ALBYL-E (ACETYLSALICYLIC ACID, MAGNESIUM OXIDE) [Concomitant]

REACTIONS (5)
  - BLOOD AMYLASE ABNORMAL [None]
  - DRUG INTERACTION [None]
  - HEPATIC FAILURE [None]
  - HEPATITIS [None]
  - HEPATOCELLULAR DAMAGE [None]
